FAERS Safety Report 4787218-3 (Version None)
Quarter: 2005Q3

REPORT INFORMATION
  Report Type: 
  Country: None (occurrence: None)
  Receive Date: 20050927
  Receipt Date: 20050622
  Transmission Date: 20060218
  Serious: No
  Sender: FDA-Public Use
  Company Number: USA0506101031

PATIENT
  Age: 36 Year
  Sex: Female

DRUGS (4)
  1. STRATTERA [Suspect]
     Indication: ATTENTION DEFICIT/HYPERACTIVITY DISORDER
     Dosage: 60 MG DAY
     Dates: start: 20031201, end: 20050601
  2. VITAMINS [Concomitant]
  3. HERBAL SUPPLEMENTS [Concomitant]
  4. PAXIL [Concomitant]

REACTIONS (6)
  - ANXIETY [None]
  - CYSTITIS [None]
  - DIZZINESS [None]
  - EAR PAIN [None]
  - HEADACHE [None]
  - IRRITABILITY [None]
